FAERS Safety Report 7116264-X (Version None)
Quarter: 2010Q4

REPORT INFORMATION
  Report Type: 
  Country: None (occurrence: None)
  Receive Date: 20101115
  Receipt Date: 20101104
  Transmission Date: 20110411
  Serious: Yes (Other)
  Sender: FDA-Public Use
  Company Number: 20109594

PATIENT
  Age: 18 Year
  Sex: Male

DRUGS (1)
  1. LIORESAL [Suspect]
     Indication: MUSCLE SPASTICITY
     Dosage: MCG, DAILY INTRATHECAL
     Route: 037

REACTIONS (3)
  - CONDITION AGGRAVATED [None]
  - IMPLANT SITE EFFUSION [None]
  - MUSCLE SPASTICITY [None]
